FAERS Safety Report 23063151 (Version 1)
Quarter: 2023Q4

REPORT INFORMATION
  Report Type: Spontaneous
  Country: US (occurrence: None)
  Receive Date: 20231012
  Receipt Date: 20231012
  Transmission Date: 20240110
  Serious: No
  Sender: FDA-Public Use
  Company Number: None

PATIENT
  Sex: 0

DRUGS (1)
  1. PREDNISONE [Suspect]
     Active Substance: PREDNISONE

REACTIONS (5)
  - Brain fog [None]
  - Muscle spasms [None]
  - Muscle fatigue [None]
  - Walking aid user [None]
  - Balance disorder [None]
